FAERS Safety Report 20627234 (Version 2)
Quarter: 2022Q3

REPORT INFORMATION
  Report Type: Spontaneous
  Country: CA (occurrence: CA)
  Receive Date: 20220323
  Receipt Date: 20220712
  Transmission Date: 20221026
  Serious: Yes (Death, Other)
  Sender: FDA-Public Use
  Company Number: CA-GLAXOSMITHKLINE-CA2022GSK051901

PATIENT

DRUGS (1)
  1. ZANTAC [Suspect]
     Active Substance: RANITIDINE HYDROCHLORIDE
     Indication: Dyspepsia
     Dosage: UNK
     Route: 065
     Dates: start: 2010, end: 2019

REACTIONS (7)
  - Death [Fatal]
  - Oesophageal adenocarcinoma [Unknown]
  - Oesophageal adenocarcinoma stage IV [Unknown]
  - Oesophageal carcinoma [Unknown]
  - Metastases to lung [Unknown]
  - Oesophageal disorder [Unknown]
  - Oesophagitis [Unknown]
